FAERS Safety Report 18984055 (Version 2)
Quarter: 2021Q3

REPORT INFORMATION
  Report Type: Spontaneous
  Country: US (occurrence: US)
  Receive Date: 20210309
  Receipt Date: 20210708
  Transmission Date: 20211014
  Serious: Yes (Hospitalization, Other)
  Sender: FDA-Public Use
  Company Number: US-GILEAD-2021-0519274

PATIENT
  Sex: Female
  Weight: 61.22 kg

DRUGS (83)
  1. BIOTIN [Concomitant]
     Active Substance: BIOTIN
  2. CEPHALEXIN [CEFALEXIN] [Concomitant]
     Active Substance: CEPHALEXIN
  3. DIPHENOXYLATE [Concomitant]
     Active Substance: DIPHENOXYLATE
  4. FUROSEMIDE. [Concomitant]
     Active Substance: FUROSEMIDE
  5. LEVAQUIN [Concomitant]
     Active Substance: LEVOFLOXACIN
  6. LOMOTIL [LOPERAMIDE HYDROCHLORIDE] [Concomitant]
     Active Substance: LOPERAMIDE HYDROCHLORIDE
  7. NITROFURANTOIN. [Concomitant]
     Active Substance: NITROFURANTOIN
  8. OFLOXACIN. [Concomitant]
     Active Substance: OFLOXACIN
  9. REGLAN [Concomitant]
     Active Substance: METOCLOPRAMIDE HYDROCHLORIDE
  10. ROPINIROLE. [Concomitant]
     Active Substance: ROPINIROLE
  11. SINGULAIR [Concomitant]
     Active Substance: MONTELUKAST SODIUM
  12. TOBRAMYCIN. [Concomitant]
     Active Substance: TOBRAMYCIN
  13. ZETIA [Concomitant]
     Active Substance: EZETIMIBE
  14. VITAMIN B COMPLEX [Concomitant]
     Active Substance: CYANOCOBALAMIN\DEXPANTHENOL\NIACINAMIDE\PYRIDOXINE HYDROCHLORIDE\RIBOFLAVIN 5^-PHOSPHATE SODIUM\THIAMINE HYDROCHLORIDE\VITAMIN B COMPLEX
  15. CIPROFLOXACIN. [Concomitant]
     Active Substance: CIPROFLOXACIN
  16. GABAPENTIN. [Concomitant]
     Active Substance: GABAPENTIN
  17. HYDROXYCHLOROQUINE [Concomitant]
     Active Substance: HYDROXYCHLOROQUINE
  18. LANSOPRAZOLE. [Concomitant]
     Active Substance: LANSOPRAZOLE
  19. LEVOFLOXACIN. [Concomitant]
     Active Substance: LEVOFLOXACIN
  20. SEREVENT DISKUS [Concomitant]
     Active Substance: SALMETEROL XINAFOATE
  21. SODIUM CITRATE. [Concomitant]
     Active Substance: SODIUM CITRATE
  22. ZOLMITRIPTAN. [Concomitant]
     Active Substance: ZOLMITRIPTAN
  23. JULUCA [Concomitant]
     Active Substance: DOLUTEGRAVIR SODIUM\RILPIVIRINE HYDROCHLORIDE
  24. PREZISTA [Concomitant]
     Active Substance: DARUNAVIR ETHANOLATE
  25. ADVAIR HFA [Concomitant]
     Active Substance: FLUTICASONE PROPIONATE\SALMETEROL XINAFOATE
  26. DEXILANT [Concomitant]
     Active Substance: DEXLANSOPRAZOLE
  27. FAMOTIDINE. [Concomitant]
     Active Substance: FAMOTIDINE
  28. LORATADINE. [Concomitant]
     Active Substance: LORATADINE
  29. ONDANSETRON [Concomitant]
     Active Substance: ONDANSETRON
  30. POTASSIUM [Concomitant]
     Active Substance: POTASSIUM
  31. PREDNISOLONE. [Concomitant]
     Active Substance: PREDNISOLONE
  32. SULFAMETHOXAZOLE [Concomitant]
     Active Substance: SULFAMETHOXAZOLE
  33. SYMBICORT [Concomitant]
     Active Substance: BUDESONIDE\FORMOTEROL FUMARATE DIHYDRATE
  34. VIREAD [Suspect]
     Active Substance: TENOFOVIR DISOPROXIL FUMARATE
     Indication: HIV INFECTION
     Dosage: UNK
     Route: 065
     Dates: end: 2008
  35. INTELENCE [Concomitant]
     Active Substance: ETRAVIRINE
  36. AMOX [AMOXICILLIN] [Concomitant]
     Active Substance: AMOXICILLIN
  37. DOXYCYCLINE. [Concomitant]
     Active Substance: DOXYCYCLINE
  38. METOCLOPRAMIDE. [Concomitant]
     Active Substance: METOCLOPRAMIDE
  39. PROPRANOLOL [Concomitant]
     Active Substance: PROPRANOLOL HYDROCHLORIDE
  40. SUCRALFATE. [Concomitant]
     Active Substance: SUCRALFATE
  41. VITAMIN E [Concomitant]
     Active Substance: .ALPHA.-TOCOPHEROL
  42. VITAMIN D3 [Concomitant]
     Active Substance: CHOLECALCIFEROL
  43. FIORICET [Concomitant]
     Active Substance: ACETAMINOPHEN\BUTALBITAL\CAFFEINE
  44. TRUVADA [Suspect]
     Active Substance: EMTRICITABINE\TENOFOVIR DISOPROXIL FUMARATE
     Indication: HIV INFECTION
     Dosage: UNK
     Route: 048
     Dates: start: 2004, end: 20100805
  45. CEFDINIR. [Concomitant]
     Active Substance: CEFDINIR
  46. CLARINEX [Concomitant]
     Active Substance: DESLORATADINE
  47. EZETIMIBE. [Concomitant]
     Active Substance: EZETIMIBE
  48. FLUCONAZOLE. [Concomitant]
     Active Substance: FLUCONAZOLE
  49. MODAFINIL. [Concomitant]
     Active Substance: MODAFINIL
  50. NASONEX [Concomitant]
     Active Substance: MOMETASONE FUROATE
  51. NUCYNTA [Concomitant]
     Active Substance: TAPENTADOL HYDROCHLORIDE
  52. PROMETHAZINE [Concomitant]
     Active Substance: PROMETHAZINE HYDROCHLORIDE
  53. CALCIUM [Concomitant]
     Active Substance: CALCIUM
  54. BENZONATATE. [Concomitant]
     Active Substance: BENZONATATE
  55. CELEBREX [Concomitant]
     Active Substance: CELECOXIB
  56. FEXOFENADINE [Concomitant]
     Active Substance: FEXOFENADINE HYDROCHLORIDE
  57. FOLIC ACID. [Concomitant]
     Active Substance: FOLIC ACID
  58. LOPERAMIDE [Concomitant]
     Active Substance: LOPERAMIDE
  59. NARATRIPTAN [Concomitant]
     Active Substance: NARATRIPTAN HYDROCHLORIDE
  60. RANITIDINE. [Concomitant]
     Active Substance: RANITIDINE
  61. SILVER SULFADIAZINE. [Concomitant]
     Active Substance: SILVER SULFADIAZINE
  62. TRAMADOL. [Concomitant]
     Active Substance: TRAMADOL
  63. WIXELA INHUB [Concomitant]
     Active Substance: FLUTICASONE PROPIONATE\SALMETEROL XINAFOATE
  64. NIZATIDINE. [Concomitant]
     Active Substance: NIZATIDINE
  65. ACYCLOVIR [ACICLOVIR] [Concomitant]
     Active Substance: ACYCLOVIR
  66. LEVOTHYROXINE. [Concomitant]
     Active Substance: LEVOTHYROXINE
  67. NEOMYCIN. [Concomitant]
     Active Substance: NEOMYCIN
  68. VITAMINS NOS [Concomitant]
     Active Substance: VITAMINS
  69. SYNTHROID [Concomitant]
     Active Substance: LEVOTHYROXINE SODIUM
  70. LOVENOX [LEVOFLOXACIN] [Concomitant]
     Active Substance: LEVOFLOXACIN
  71. ISENTRESS [Concomitant]
     Active Substance: RALTEGRAVIR POTASSIUM
  72. NORVIR [Concomitant]
     Active Substance: RITONAVIR
  73. AZULFIDINE [Concomitant]
     Active Substance: SULFASALAZINE
  74. BREO ELLIPTA [Concomitant]
     Active Substance: FLUTICASONE FUROATE\VILANTEROL TRIFENATATE
  75. FLUTICASONE. [Concomitant]
     Active Substance: FLUTICASONE
  76. KLOR?CON [Concomitant]
     Active Substance: POTASSIUM CHLORIDE
  77. LACTAID [Concomitant]
     Active Substance: LACTASE
  78. LEVETIRACETAM. [Concomitant]
     Active Substance: LEVETIRACETAM
  79. MONTELUKAST [Concomitant]
     Active Substance: MONTELUKAST SODIUM
  80. NYSTATIN. [Concomitant]
     Active Substance: NYSTATIN
  81. PANTOPRAZOLE [Concomitant]
     Active Substance: PANTOPRAZOLE
  82. PREDNISONE. [Concomitant]
     Active Substance: PREDNISONE
  83. VITAMIN C [Concomitant]
     Active Substance: ASCORBIC ACID

REACTIONS (17)
  - Acute kidney injury [Recovered/Resolved]
  - Rib fracture [Recovered/Resolved]
  - Anaemia [Not Recovered/Not Resolved]
  - Chronic kidney disease [Not Recovered/Not Resolved]
  - Osteonecrosis [Recovered/Resolved]
  - Anhedonia [Not Recovered/Not Resolved]
  - Pneumonia [Recovered/Resolved]
  - Emotional distress [Not Recovered/Not Resolved]
  - Gait disturbance [Not Recovered/Not Resolved]
  - Rheumatoid arthritis [Not Recovered/Not Resolved]
  - Foot deformity [Recovered/Resolved]
  - Foot fracture [Recovered/Resolved]
  - Proteinuria [Recovered/Resolved]
  - Osteoporosis [Not Recovered/Not Resolved]
  - Multiple fractures [Unknown]
  - Pain [Not Recovered/Not Resolved]
  - Anxiety [Not Recovered/Not Resolved]

NARRATIVE: CASE EVENT DATE: 2006
